FAERS Safety Report 6990839-0 (Version None)
Quarter: 2010Q3

REPORT INFORMATION
  Report Type: 
  Country: None (occurrence: None)
  Receive Date: 20100916
  Receipt Date: 20090811
  Transmission Date: 20110219
  Serious: Yes (Other)
  Sender: FDA-Public Use
  Company Number: HQWYE542315AUG06

PATIENT
  Sex: Female

DRUGS (6)
  1. PREMARIN [Suspect]
  2. GYNODIOL [Suspect]
  3. ESTRACE [Suspect]
  4. CHLOROBUTANOL/COTTONSEED OIL/ESTRADIOL CIPIONATE [Suspect]
  5. ESTRADIOL [Suspect]
  6. ESTRATEST [Suspect]

REACTIONS (1)
  - BREAST CANCER [None]
